FAERS Safety Report 7868696 (Version 4)
Quarter: 2013Q1

REPORT INFORMATION
  Report Type: Report from Study
  Country: DE (occurrence: DE)
  Receive Date: 20110323
  Receipt Date: 20130301
  Transmission Date: 20140127
  Serious: Yes (Death, Hospitalization)
  Sender: FDA-Public Use
  Company Number: DE-BRISTOL-MYERS SQUIBB COMPANY-15618895

PATIENT
  Age: 77 Year
  Sex: Male
  Weight: 72 kg

DRUGS (11)
  1. ERBITUX SOLN FOR INF [Suspect]
     Indication: COLORECTAL CANCER METASTATIC
     Dosage: 250MG/M2 ON 03JAN11-21FEB11(49 DAYS)?RECENT INF:21FEB11
     Route: 042
     Dates: start: 20101227, end: 20110221
  2. 5-FLUOROURACIL [Concomitant]
     Indication: COLORECTAL CANCER METASTATIC
     Dosage: CON INF ON DAY1 AND 2,400MG/M2 OVER 22-24 HRS CON INF.(27DEC10 ALSO TAKEN AS 1200MG/M2)?EVERY 2 WKS
     Route: 040
  3. IRINOTECAN [Concomitant]
     Indication: COLORECTAL CANCER METASTATIC
     Dates: start: 20101227, end: 20110221
  4. CALCIUM FOLINATE [Concomitant]
     Indication: COLORECTAL CANCER METASTATIC
     Dates: start: 20101227, end: 20110221
  5. RAMIPRIL PLUS [Concomitant]
     Indication: HYPERTENSION
     Dates: start: 20000115
  6. PRAVASTATIN SODIUM [Concomitant]
     Indication: HYPERTENSION
     Dates: start: 20000115
  7. DIGIMERCK [Concomitant]
     Indication: CARDIAC DISORDER
     Dates: start: 20000115
  8. FOLINIC ACID [Concomitant]
     Indication: COLORECTAL CANCER METASTATIC
     Dates: start: 20101227
  9. CORTICOSTEROID [Concomitant]
     Indication: PREMEDICATION
     Route: 042
     Dates: end: 20110103
  10. GRANISETRON [Concomitant]
     Indication: PREMEDICATION
     Dosage: GIVEN 0-30MIN
     Dates: start: 20101227, end: 20110103
  11. ATROPINE [Concomitant]
     Indication: PREMEDICATION
     Dosage: GIVEN 0-30MIN
     Dates: start: 20101227, end: 20110103

REACTIONS (1)
  - Myocardial infarction [Fatal]
